FAERS Safety Report 10669459 (Version 2)
Quarter: 2014Q4

REPORT INFORMATION
  Report Type: Spontaneous
  Country: FI (occurrence: FI)
  Receive Date: 20141222
  Receipt Date: 20141222
  Transmission Date: 20150529
  Serious: Yes (Life-Threatening)
  Sender: FDA-Public Use
  Company Number: FI-BAUSCH-SYM-2014-22255

PATIENT
  Age: 62 Year
  Sex: Female

DRUGS (17)
  1. TOLONO [Concomitant]
     Indication: AFFECTIVE DISORDER
  2. OPAMOX [Concomitant]
     Indication: FEELING OF RELAXATION
  3. DINIT [Concomitant]
     Active Substance: ISOSORBIDE DINITRATE
     Indication: CARDIAC DISORDER
  4. CALCICHEW [Concomitant]
     Active Substance: CALCIUM CARBONATE
     Indication: BONE DISORDER
  5. VOXRA [Suspect]
     Active Substance: BUPROPION HYDROCHLORIDE
     Indication: DEPRESSION
     Route: 048
     Dates: start: 20140514, end: 20140602
  6. KETIPINOR [Concomitant]
     Indication: AFFECTIVE DISORDER
  7. EFEXOR DEPOT [Concomitant]
     Active Substance: VENLAFAXINE HYDROCHLORIDE
     Indication: FUNCTIONAL RESIDUAL CAPACITY
  8. EFEXOR DEPOT [Concomitant]
     Active Substance: VENLAFAXINE HYDROCHLORIDE
     Indication: AFFECTIVE DISORDER
  9. INSOMIN [Concomitant]
     Indication: SLEEP DISORDER
  10. NEUROBION [Concomitant]
     Active Substance: CYANOCOBALAMIN\PYRIDOXINE\THIAMINE
     Indication: VITAMIN SUPPLEMENTATION
  11. ARTHRYL [Concomitant]
     Indication: OSTEOARTHRITIS
  12. KETIPINOR [Concomitant]
     Indication: SLEEP DISORDER
  13. TOLONO [Concomitant]
     Indication: SLEEP DISORDER
  14. OPAMOX [Concomitant]
     Indication: SLEEP DISORDER
  15. HISTEC [Concomitant]
     Indication: HYPERSENSITIVITY
  16. LAXOBERON [Concomitant]
     Active Substance: SODIUM PICOSULFATE
     Indication: ABDOMINAL DISCOMFORT
  17. PANTOPRAZOLE [Concomitant]
     Active Substance: PANTOPRAZOLE SODIUM
     Indication: ABDOMINAL DISCOMFORT

REACTIONS (6)
  - Tinnitus [Recovered/Resolved]
  - Pyrexia [Recovered/Resolved]
  - Psychotic disorder [Recovered/Resolved]
  - Chest pain [Recovered/Resolved]
  - Major depression [Recovered/Resolved]
  - Dizziness [Recovered/Resolved]

NARRATIVE: CASE EVENT DATE: 20140602
